FAERS Safety Report 8610024-6 (Version None)
Quarter: 2012Q3

REPORT INFORMATION
  Report Type: 
  Country: None (occurrence: None)
  Receive Date: 20120822
  Receipt Date: 20120810
  Transmission Date: 20120928
  Serious: Yes (Other)
  Sender: FDA-Public Use
  Company Number: DE-AMGEN-DEUSP2012052167

PATIENT
  Age: 54 Year
  Sex: Male

DRUGS (4)
  1. PREDNISONE TAB [Concomitant]
     Dosage: 10 MG, UNK
  2. ENBREL [Suspect]
     Indication: PRODUCT USED FOR UNKNOWN INDICATION
     Dosage: 50 MG, WEEKLY
     Route: 058
     Dates: start: 20010305
  3. DICLOFENAC SODIUM [Concomitant]
     Dosage: 75 MG, 2X/DAY
  4. METHOTREXATE SODIUM [Suspect]
     Dosage: 15 MG, WEEKLY
     Dates: start: 19980101

REACTIONS (1)
  - CHRONIC MYELOID LEUKAEMIA [None]
